FAERS Safety Report 5199967-6 (Version None)
Quarter: 2007Q1

REPORT INFORMATION
  Report Type: 
  Country: None (occurrence: None)
  Receive Date: 20070105
  Receipt Date: 20061229
  Transmission Date: 20070707
  Serious: Yes (Disabling, Other)
  Sender: FDA-Public Use
  Company Number: US-MERCK-0610USA06241

PATIENT
  Age: 4 Year
  Sex: Male
  Weight: 35 kg

DRUGS (5)
  1. SINGULAIR [Suspect]
     Indication: ASTHMA
     Route: 048
     Dates: start: 20050101
  2. SINGULAIR [Suspect]
     Indication: WHEEZING
     Route: 048
     Dates: start: 20050101
  3. FLOVENT [Concomitant]
     Route: 065
  4. ORAPRED [Concomitant]
     Route: 065
  5. ZYRTEC [Concomitant]
     Route: 065

REACTIONS (2)
  - COUGH [None]
  - WHEEZING [None]
